FAERS Safety Report 9733890 (Version 2)
Quarter: 2013Q4

REPORT INFORMATION
  Report Type: Spontaneous
  Country: JP (occurrence: JP)
  Receive Date: 20131205
  Receipt Date: 20131231
  Transmission Date: 20140711
  Serious: No
  Sender: FDA-Public Use
  Company Number: JP-B.I. PHARMACEUTICALS,INC./RIDGEFIELD-2013-BI-40478NB

PATIENT
  Sex: 0

DRUGS (1)
  1. BI-SIFROL [Suspect]
     Route: 065

REACTIONS (1)
  - No adverse event [Unknown]
